FAERS Safety Report 9683505 (Version 1)
Quarter: 2013Q4

REPORT INFORMATION
  Report Type: Spontaneous
  Country: US (occurrence: US)
  Receive Date: 20131112
  Receipt Date: 20131112
  Transmission Date: 20140711
  Serious: Yes (Other)
  Sender: FDA-Public Use
  Company Number: US-BAYER-2013-134012

PATIENT
  Age: 84 Year
  Sex: Male

DRUGS (15)
  1. DACARBAZINE [Suspect]
     Indication: MALIGNANT MELANOMA
     Dosage: 1820MG CYCLICAL
     Route: 042
     Dates: start: 20130805, end: 20130826
  2. DACARBAZINE [Suspect]
     Indication: MALIGNANT MELANOMA
     Dosage: 1820MG CYCLICAL
     Route: 042
     Dates: start: 20130826
  3. METFORMIN [Concomitant]
  4. ASPIRIN [Concomitant]
  5. PLAVIX [Concomitant]
  6. GLYBURIDE [Concomitant]
  7. LEVOTHYROXINE [Concomitant]
  8. LISINOPRIL [Concomitant]
  9. METOPROLOL [Concomitant]
  10. OXYCODONE [Concomitant]
  11. SIMVASTATIN [Concomitant]
  12. FINASTERIDE [Concomitant]
     Dosage: UNK
     Dates: start: 20130708
  13. PREDNISONE [Concomitant]
     Dosage: UNK
     Dates: start: 20130708
  14. PROCHLORPERAZINE [Concomitant]
     Dosage: UNK
     Dates: start: 20130805
  15. MORPHINE [Concomitant]
     Dosage: UNK
     Dates: start: 20130826

REACTIONS (4)
  - Hypoglycaemia [Recovered/Resolved]
  - Fatigue [Recovered/Resolved]
  - Chills [Recovered/Resolved]
  - Hypotension [Recovered/Resolved]
